FAERS Safety Report 17115620 (Version 1)
Quarter: 2019Q4

REPORT INFORMATION
  Report Type: Spontaneous
  Country: US (occurrence: US)
  Receive Date: 20191205
  Receipt Date: 20191205
  Transmission Date: 20200122
  Serious: No
  Sender: FDA-Public Use
  Company Number: US-JNJFOC-20191138583

PATIENT
  Age: 72 Year
  Sex: Female
  Weight: 75.91 kg

DRUGS (1)
  1. PEPCID AC [Suspect]
     Active Substance: FAMOTIDINE
     Indication: HYPERVENTILATION
     Dosage: 1 TAB A DAY 2 TO 3 CONSECUTIVE DAYS
     Route: 048
     Dates: start: 20191111

REACTIONS (4)
  - Heart rate increased [Recovered/Resolved]
  - Product use in unapproved indication [Unknown]
  - Panic attack [Recovered/Resolved]
  - Anxiety [Recovered/Resolved]

NARRATIVE: CASE EVENT DATE: 20191111
